FAERS Safety Report 9462432 (Version 2)
Quarter: 2013Q3

REPORT INFORMATION
  Report Type: Spontaneous
  Country: US (occurrence: US)
  Receive Date: 20130816
  Receipt Date: 20130905
  Transmission Date: 20140515
  Serious: Yes (Disabling, Other)
  Sender: FDA-Public Use
  Company Number: US-TARO-2013P1016878

PATIENT
  Age: 26 Year
  Sex: Female
  Weight: 111.13 kg

DRUGS (9)
  1. ACETAZOLAMIDE TABLETS 250 MG [Suspect]
     Route: 048
     Dates: start: 2010, end: 2011
  2. ACETAZOLAMIDE TABLETS 250 MG [Suspect]
     Indication: ENDOCRINE HYPERTENSION
     Route: 048
     Dates: start: 2010, end: 2011
  3. ACETAZOLAMIDE TABLETS 250 MG [Suspect]
     Indication: MASS
     Route: 048
     Dates: start: 2010, end: 2011
  4. ACETAZOLAMIDE TABLETS 250 MG [Suspect]
     Route: 048
     Dates: start: 2011
  5. ACETAZOLAMIDE TABLETS 250 MG [Suspect]
     Indication: ENDOCRINE HYPERTENSION
     Route: 048
     Dates: start: 2011
  6. ACETAZOLAMIDE TABLETS 250 MG [Suspect]
     Indication: MASS
     Route: 048
     Dates: start: 2011
  7. ACETAZOLAMIDE TABLETS 250 MG [Suspect]
  8. ACETAZOLAMIDE TABLETS 250 MG [Suspect]
     Indication: ENDOCRINE HYPERTENSION
  9. ACETAZOLAMIDE TABLETS 250 MG [Suspect]
     Indication: MASS

REACTIONS (3)
  - Papilloedema [Not Recovered/Not Resolved]
  - Blindness transient [Recovered/Resolved]
  - Exposure during pregnancy [Unknown]
